FAERS Safety Report 21360645 (Version 1)
Quarter: 2022Q3

REPORT INFORMATION
  Report Type: Spontaneous
  Country: US (occurrence: US)
  Receive Date: 20220921
  Receipt Date: 20220921
  Transmission Date: 20221026
  Serious: Yes (Other)
  Sender: FDA-Public Use
  Company Number: US-APOTEX-2022AP012924

PATIENT
  Sex: Female

DRUGS (2)
  1. APO-VARENICLINE [Suspect]
     Active Substance: VARENICLINE TARTRATE
     Indication: Smoking cessation therapy
     Dosage: UNK UNK, BID
     Route: 048
     Dates: start: 20220615
  2. TYLENOL [Concomitant]
     Active Substance: ACETAMINOPHEN
     Indication: Headache
     Dosage: 1 DOSAGE FORM, PRN
     Route: 048

REACTIONS (3)
  - Blindness [Unknown]
  - Visual impairment [Unknown]
  - Photopsia [Unknown]

NARRATIVE: CASE EVENT DATE: 20220619
